FAERS Safety Report 5322641-X (Version None)
Quarter: 2007Q2

REPORT INFORMATION
  Report Type: 
  Country: None (occurrence: None)
  Receive Date: 20070511
  Receipt Date: 20070502
  Transmission Date: 20071010
  Serious: Yes (Hospitalization)
  Sender: FDA-Public Use
  Company Number: CA-JNJFOC-20060501539

PATIENT
  Sex: Male
  Weight: 85.5 kg

DRUGS (11)
  1. TYLENOL [Suspect]
     Route: 048
  2. TYLENOL [Suspect]
     Indication: ANALGESIC EFFECT
     Route: 048
  3. OXYCODONE HCL [Suspect]
     Indication: ANALGESIC EFFECT
     Route: 048
  4. SU-011,248 (SUNITINIB MALATE) [Suspect]
     Indication: METASTATIC RENAL CELL CARCINOMA
     Route: 048
  5. MARIJUANA [Suspect]
     Indication: DRUG USE FOR UNKNOWN INDICATION
     Route: 055
  6. SENOKOT [Concomitant]
     Route: 048
  7. COLACE [Concomitant]
     Route: 048
  8. FERROUS GLUCONATE [Concomitant]
     Route: 048
  9. ATIVAN [Concomitant]
     Route: 048
  10. TAMSULOSIN HCL [Concomitant]
     Route: 048
  11. LACTULOSE [Concomitant]
     Route: 048

REACTIONS (3)
  - ABDOMINAL PAIN [None]
  - BACK PAIN [None]
  - CONSTIPATION [None]
